FAERS Safety Report 19792639 (Version 1)
Quarter: 2021Q3

REPORT INFORMATION
  Report Type: Spontaneous
  Country: CA (occurrence: CA)
  Receive Date: 20210906
  Receipt Date: 20210906
  Transmission Date: 20211014
  Serious: Yes (Hospitalization)
  Sender: FDA-Public Use
  Company Number: CA-TEVA-2021-CA-1948249

PATIENT
  Age: 74 Year
  Sex: Female

DRUGS (12)
  1. PANTOPRAZOLE [Suspect]
     Active Substance: PANTOPRAZOLE
     Dosage: 40 MILLIGRAM DAILY;
  2. IRON [Concomitant]
     Active Substance: IRON
  3. QUETIAPINE. [Concomitant]
     Active Substance: QUETIAPINE
  4. ABILIFY [Concomitant]
     Active Substance: ARIPIPRAZOLE
  5. SYNTHROID [Concomitant]
     Active Substance: LEVOTHYROXINE SODIUM
  6. INVOKANA [Concomitant]
     Active Substance: CANAGLIFLOZIN
  7. ASPIRIN. [Concomitant]
     Active Substance: ASPIRIN
  8. CLONAZEPAM. [Concomitant]
     Active Substance: CLONAZEPAM
  9. RAMIPRIL. [Concomitant]
     Active Substance: RAMIPRIL
  10. VENLAFAXINE HYDROCHLORIDE. [Concomitant]
     Active Substance: VENLAFAXINE HYDROCHLORIDE
  11. VITAMIN D [Concomitant]
     Active Substance: VITAMIN D NOS
  12. BISOPROLOL [Concomitant]
     Active Substance: BISOPROLOL

REACTIONS (4)
  - Fall [Unknown]
  - Hypomagnesaemia [Unknown]
  - Weight decreased [Unknown]
  - Diarrhoea [Unknown]
